FAERS Safety Report 4706510-1 (Version None)
Quarter: 2005Q2

REPORT INFORMATION
  Report Type: 
  Country: None (occurrence: None)
  Receive Date: 20050114
  Receipt Date: 20050114
  Transmission Date: 20051028
  Serious: Yes (Life-Threatening)
  Sender: FDA-Public Use
  Company Number: None

PATIENT
  Sex: Female
  Weight: 130.1823 kg

DRUGS (3)
  1. COUMADIN [Suspect]
     Indication: DEEP VEIN THROMBOSIS
     Dosage: 10MG Q DAILY PO   LIFE LONG
     Route: 048
  2. COUMADIN [Suspect]
     Indication: FACTOR V LEIDEN MUTATION
     Dosage: 10MG Q DAILY PO   LIFE LONG
     Route: 048
  3. COUMADIN [Suspect]
     Indication: PULMONARY EMBOLISM
     Dosage: 10MG Q DAILY PO   LIFE LONG
     Route: 048

REACTIONS (1)
  - INTERNATIONAL NORMALISED RATIO FLUCTUATION [None]
